FAERS Safety Report 5158297-9 (Version None)
Quarter: 2006Q4

REPORT INFORMATION
  Report Type: 
  Country: None (occurrence: None)
  Receive Date: 20061128
  Receipt Date: 20061116
  Transmission Date: 20070319
  Serious: Yes (Other)
  Sender: FDA-Public Use
  Company Number: PHEH2006US14378

PATIENT
  Age: 83 Year
  Sex: Female
  Weight: 74.376 kg

DRUGS (6)
  1. ZOMETA [Suspect]
     Indication: MULTIPLE MYELOMA
     Dosage: 4 MG
     Dates: start: 20020327
  2. ALKERAN [Concomitant]
     Indication: MULTIPLE MYELOMA
  3. PREDNISONE TAB [Concomitant]
     Indication: MULTIPLE MYELOMA
  4. THALIDOMIDE [Concomitant]
     Indication: MULTIPLE MYELOMA
  5. DECADRON [Concomitant]
     Indication: MULTIPLE MYELOMA
  6. VELCADE [Concomitant]
     Indication: MULTIPLE MYELOMA

REACTIONS (4)
  - MASTICATION DISORDER [None]
  - PAIN [None]
  - SWELLING [None]
  - WOUND DEBRIDEMENT [None]
